FAERS Safety Report 9970318 (Version 1)
Quarter: 2014Q1

REPORT INFORMATION
  Report Type: Spontaneous
  Country: US (occurrence: None)
  Receive Date: 20140305
  Receipt Date: 20140305
  Transmission Date: 20141002
  Serious: Yes (Hospitalization)
  Sender: FDA-Public Use
  Company Number: None

PATIENT
  Age: 53 Year
  Sex: Female
  Weight: 91.17 kg

DRUGS (2)
  1. PAXIL (GENERIC) [Suspect]
     Indication: DEPRESSION
     Dosage: TAKEN 1/2 PILL
     Route: 048
     Dates: start: 20140220, end: 20140222
  2. PAXIL (GENERIC) [Suspect]
     Indication: ANXIETY
     Dosage: TAKEN 1/2 PILL
     Route: 048
     Dates: start: 20140220, end: 20140222

REACTIONS (7)
  - Stress [None]
  - Palpitations [None]
  - Panic attack [None]
  - Dizziness [None]
  - Dry mouth [None]
  - Speech disorder [None]
  - Middle insomnia [None]
